FAERS Safety Report 4499308-3 (Version None)
Quarter: 2004Q4

REPORT INFORMATION
  Report Type: 
  Country: None (occurrence: None)
  Receive Date: 20040928
  Receipt Date: 20040729
  Transmission Date: 20050328
  Serious: No
  Sender: FDA-Public Use
  Company Number: 04P-163-0268394-00

PATIENT
  Age: 50 Year
  Sex: Male
  Weight: 74.8435 kg

DRUGS (4)
  1. HUMIRA [Suspect]
     Indication: RHEUMATOID ARTHRITIS
     Dosage: 40 MG, 1 IN 2 WK, SUBCUTANEOUS
     Route: 058
     Dates: start: 20040501, end: 20040716
  2. PREDNISONE [Concomitant]
  3. BISOTROLOL [Concomitant]
  4. HYDROCODONE [Concomitant]

REACTIONS (5)
  - DIARRHOEA [None]
  - FEELING JITTERY [None]
  - PHARYNGOLARYNGEAL PAIN [None]
  - SINUSITIS [None]
  - STOMACH DISCOMFORT [None]
